FAERS Safety Report 9506446 (Version 2)
Quarter: 2013Q3

REPORT INFORMATION
  Report Type: Spontaneous
  Country: AU (occurrence: None)
  Receive Date: 20130904
  Receipt Date: 20130911
  Transmission Date: 20140515
  Serious: Yes (Life-Threatening, Other)
  Sender: FDA-Public Use
  Company Number: AUR-APL-2013-07235

PATIENT
  Age: 29 Year
  Sex: Female

DRUGS (6)
  1. CITALOPRAM [Suspect]
     Indication: PRODUCT USED FOR UNKNOWN INDICATION
  2. QUETIAPINE [Suspect]
     Indication: PRODUCT USED FOR UNKNOWN INDICATION
  3. CLEXANE [Suspect]
     Indication: PRODUCT USED FOR UNKNOWN INDICATION
  4. ALEPAM (OXAZEPAM) [Concomitant]
  5. MAXOLON [Concomitant]
  6. ONDANSETRON (ONDANSETRON) [Concomitant]

REACTIONS (3)
  - Hyperemesis gravidarum [None]
  - Wound haemorrhage [None]
  - Maternal exposure during pregnancy [None]
